FAERS Safety Report 13427865 (Version 2)
Quarter: 2017Q2

REPORT INFORMATION
  Report Type: Report from Study
  Country: US (occurrence: US)
  Receive Date: 20170411
  Receipt Date: 20170630
  Transmission Date: 20170830
  Serious: Yes (Other)
  Sender: FDA-Public Use
  Company Number: US-PFIZER INC-2017151921

PATIENT
  Age: 52 Year
  Sex: Female

DRUGS (5)
  1. IMBRUVICA [Interacting]
     Active Substance: IBRUTINIB
     Dosage: 420 MG, 1X/DAY [AROUND MID-MORNING WITHOUT FOOD]
     Route: 048
     Dates: start: 20160330
  2. IMBRUVICA [Interacting]
     Active Substance: IBRUTINIB
     Indication: CHRONIC LYMPHOCYTIC LEUKAEMIA
     Dosage: 420 MG, 1X/DAY [AROUND MID-MORNING WITHOUT FOOD]
     Route: 048
     Dates: start: 20160330
  3. IMBRUVICA [Interacting]
     Active Substance: IBRUTINIB
     Dosage: 420 MG, 1X/DAY (AROUND MID-MORNING WITHOUT FOOD)
     Route: 048
     Dates: start: 20160330
  4. IMBRUVICA [Interacting]
     Active Substance: IBRUTINIB
     Dosage: 420 MG, 1X/DAY [AROUND MID-MORNING WITHOUT FOOD]
     Route: 048
     Dates: start: 20160330
  5. FLUCONAZOLE. [Suspect]
     Active Substance: FLUCONAZOLE
     Indication: FUNGAL INFECTION
     Dosage: UNK
     Dates: start: 2016, end: 2016

REACTIONS (26)
  - Contusion [Unknown]
  - Thought blocking [Unknown]
  - Drug interaction [Unknown]
  - Dysphonia [Unknown]
  - Chills [Unknown]
  - Anxiety [Unknown]
  - Myalgia [Unknown]
  - Amnesia [Unknown]
  - Gait disturbance [Unknown]
  - Fall [Unknown]
  - Dysuria [Unknown]
  - Oropharyngeal pain [Unknown]
  - Urine abnormality [Unknown]
  - Cough [Unknown]
  - Pruritus [Unknown]
  - Fatigue [Unknown]
  - Aphasia [Unknown]
  - Chromaturia [Unknown]
  - Arthralgia [Unknown]
  - Abdominal discomfort [Unknown]
  - Diarrhoea [Unknown]
  - Oral candidiasis [Unknown]
  - Pyrexia [Unknown]
  - Wheezing [Unknown]
  - Faeces discoloured [Recovered/Resolved]
  - Nausea [Unknown]

NARRATIVE: CASE EVENT DATE: 2016
